FAERS Safety Report 5925590-9 (Version None)
Quarter: 2008Q4

REPORT INFORMATION
  Report Type: 
  Country: None (occurrence: None)
  Receive Date: 20081021
  Receipt Date: 20081014
  Transmission Date: 20090506
  Serious: Yes (Death)
  Sender: FDA-Public Use
  Company Number: A0750514A

PATIENT
  Age: 58 Year
  Sex: Male
  Weight: 65.9 kg

DRUGS (7)
  1. COREG [Suspect]
     Dosage: 3.125MG TWICE PER DAY
     Route: 048
  2. WELLBUTRIN XL [Suspect]
     Indication: DEPRESSION
     Dosage: 300MG PER DAY
     Route: 048
     Dates: start: 20060601
  3. AMBIEN [Concomitant]
     Indication: INSOMNIA
     Dosage: 10MG AS REQUIRED
     Route: 048
  4. PRILOSEC [Concomitant]
     Dosage: 20MG TWICE PER DAY
     Route: 048
  5. LASIX [Concomitant]
     Dosage: 40MG TWICE PER DAY
     Route: 048
  6. HYDRALAZINE HCL [Concomitant]
     Dosage: 10MG PER DAY
     Route: 048
  7. METOLAZONE [Concomitant]
     Dosage: 2.5MG PER DAY
     Route: 048

REACTIONS (1)
  - DEATH [None]
